FAERS Safety Report 8885594 (Version 1)
Quarter: 2012Q4

REPORT INFORMATION
  Report Type: 
  Country: US (occurrence: US)
  Receive Date: 20121102
  Receipt Date: 20121102
  Transmission Date: 20130627
  Serious: Yes (Other)
  Sender: FDA-Public Use
  Company Number: US-ABBOTT-12P-163-0999859-00

PATIENT
  Age: 59 None
  Sex: Female
  Weight: 80.36 kg

DRUGS (6)
  1. CLARITHROMYCIN [Suspect]
     Indication: BRONCHITIS
     Dates: start: 20121006, end: 20121007
  2. HCT [Concomitant]
     Indication: HYPERTENSION
  3. POTASSIUM [Concomitant]
     Indication: MINERAL SUPPLEMENTATION
  4. CITALOPRAM [Concomitant]
     Indication: DEPRESSION
  5. MULTIPLE VITAMINS [Concomitant]
     Indication: VITAMIN SUPPLEMENTATION
  6. BENTYL [Concomitant]
     Indication: GASTROOESOPHAGEAL REFLUX DISEASE

REACTIONS (11)
  - Panic attack [Recovered/Resolved]
  - Muscle spasms [Not Recovered/Not Resolved]
  - Weight decreased [Not Recovered/Not Resolved]
  - Diarrhoea [Recovering/Resolving]
  - Nausea [Recovering/Resolving]
  - Vomiting [Recovered/Resolved]
  - Blood potassium decreased [Recovering/Resolving]
  - Gastrooesophageal reflux disease [Not Recovered/Not Resolved]
  - Drug hypersensitivity [Not Recovered/Not Resolved]
  - Dizziness [Recovering/Resolving]
  - Gastric disorder [None]
